FAERS Safety Report 6284423-4 (Version None)
Quarter: 2009Q3

REPORT INFORMATION
  Report Type: 
  Country: None (occurrence: None)
  Receive Date: 20090727
  Receipt Date: 20090716
  Transmission Date: 20100115
  Serious: Yes (Hospitalization)
  Sender: FDA-Public Use
  Company Number: FR-ROCHE-644320

PATIENT
  Sex: Male
  Weight: 60 kg

DRUGS (2)
  1. RIBAVIRIN [Suspect]
     Indication: HEPATITIS C
     Dosage: DOSING AMOUNT = 800 WITHOUT UNIT PROVIDED
     Route: 065
     Dates: start: 20080119, end: 20080704
  2. PEG-INTERFERON ALFA 2A (RO 25-8310) [Suspect]
     Indication: HEPATITIS C
     Dosage: DOSING AMOUNT = 180 WITHOUT UNIT PROVIDED
     Route: 065
     Dates: start: 20080119, end: 20080704

REACTIONS (1)
  - MALNUTRITION [None]
